FAERS Safety Report 9172161 (Version 1)
Quarter: 2013Q1

REPORT INFORMATION
  Report Type: Spontaneous
  Country: US (occurrence: US)
  Receive Date: 20130319
  Receipt Date: 20130319
  Transmission Date: 20140127
  Serious: No
  Sender: FDA-Public Use
  Company Number: US-BAYER-2013-033564

PATIENT
  Sex: Female

DRUGS (2)
  1. DESONATE GEL [Suspect]
  2. SUNSCREEN [Concomitant]

REACTIONS (1)
  - Erythema [None]
